FAERS Safety Report 14158462 (Version 1)
Quarter: 2017Q4

REPORT INFORMATION
  Report Type: Spontaneous
  Country: US (occurrence: US)
  Receive Date: 20171106
  Receipt Date: 20171106
  Transmission Date: 20180321
  Serious: No
  Sender: FDA-Public Use
  Company Number: US-TEVA-731526ACC

PATIENT
  Sex: Male

DRUGS (1)
  1. DOXAZOSIN TABLETS, USP [Suspect]
     Active Substance: DOXAZOSIN\DOXAZOSIN MESYLATE

REACTIONS (2)
  - Blood pressure increased [Unknown]
  - Middle insomnia [Unknown]
